FAERS Safety Report 5378530-8 (Version None)
Quarter: 2007Q3

REPORT INFORMATION
  Report Type: 
  Country: None (occurrence: None)
  Receive Date: 20070705
  Receipt Date: 20070628
  Transmission Date: 20080115
  Serious: Yes (Hospitalization)
  Sender: FDA-Public Use
  Company Number: CN-ASTRAZENECA-2007AP03881

PATIENT
  Age: 70 Year
  Sex: Female

DRUGS (10)
  1. OMEPRAZOLE [Suspect]
     Indication: HEPATIC CIRRHOSIS
     Route: 048
  2. OMEPRAZOLE [Suspect]
     Indication: VARICES OESOPHAGEAL
     Route: 048
  3. OMEPRAZOLE [Suspect]
     Indication: HEPATIC CIRRHOSIS
     Route: 041
  4. OMEPRAZOLE [Suspect]
     Indication: VARICES OESOPHAGEAL
     Route: 041
  5. BUTYLCIN-NAMYLPYRAZINE [Suspect]
     Indication: PAIN
     Route: 030
  6. CEFOPERAZONE SODIUM [Concomitant]
  7. SULBACTAM [Concomitant]
  8. NON SPECIFIED HEMOSTASIS AGENTS [Concomitant]
  9. NON SPECIFIED DIURETIC AGENTS [Concomitant]
  10. NON SPECIFIED ANTIBIOTICS [Concomitant]

REACTIONS (5)
  - ABDOMINAL PAIN UPPER [None]
  - BACK PAIN [None]
  - HAEMATEMESIS [None]
  - NAUSEA [None]
  - PALPITATIONS [None]
